FAERS Safety Report 19279491 (Version 11)
Quarter: 2021Q3

REPORT INFORMATION
  Report Type: Spontaneous
  Country: PL (occurrence: PL)
  Receive Date: 20210520
  Receipt Date: 20210922
  Transmission Date: 20211014
  Serious: Yes (Life-Threatening, Hospitalization, Other)
  Sender: FDA-Public Use
  Company Number: PL-MYLANLABS-2021M1029203

PATIENT
  Age: 42 Year
  Sex: Male

DRUGS (49)
  1. TRAMADOL. [Suspect]
     Active Substance: TRAMADOL
     Indication: ANALGESIC THERAPY
     Dosage: UNK
  2. IBUPROFEN. [Suspect]
     Active Substance: IBUPROFEN
     Indication: PAIN
     Dosage: UNK
  3. IBUPROFEN. [Suspect]
     Active Substance: IBUPROFEN
     Indication: ARTHRALGIA
  4. IBUPROFEN. [Suspect]
     Active Substance: IBUPROFEN
     Indication: MASTOCYTOSIS
  5. PREGABALIN. [Suspect]
     Active Substance: PREGABALIN
     Indication: PAIN
     Dosage: 150 MILLIGRAM
  6. PREGABALIN. [Suspect]
     Active Substance: PREGABALIN
     Dosage: 300 MILLIGRAM, QD (150 MG, 2X PER DAY)
  7. PARACETAMOL [Suspect]
     Active Substance: ACETAMINOPHEN
     Indication: ANALGESIC THERAPY
  8. MORPHINE [Suspect]
     Active Substance: MORPHINE
     Indication: BONE PAIN
  9. FENTANYL. [Suspect]
     Active Substance: FENTANYL
     Indication: MASTOCYTOSIS
     Dosage: ADM MORE THAN 4 TIMES PER DAY DUE TO THE FREQUENT EXCEEDING OF FOUR ADMINISTRATIONS A DAY
     Route: 002
  10. TRAMADOL. [Suspect]
     Active Substance: TRAMADOL
     Indication: PAIN
     Dosage: UNK
     Route: 065
  11. METAMIZOLE [Suspect]
     Active Substance: METAMIZOLE
     Indication: MASTOCYTOSIS
  12. KETOPROFEN. [Suspect]
     Active Substance: KETOPROFEN
     Indication: MASTOCYTOSIS
  13. FENTANYL. [Suspect]
     Active Substance: FENTANYL
     Indication: ARTHRALGIA
     Dosage: UNK
     Route: 045
  14. IBUPROFEN. [Suspect]
     Active Substance: IBUPROFEN
     Indication: SYSTEMIC MASTOCYTOSIS
  15. PREGABALIN. [Suspect]
     Active Substance: PREGABALIN
     Dosage: UNK
  16. OXYCODONE [Suspect]
     Active Substance: OXYCODONE
     Indication: ARTHRALGIA
     Dosage: 400 MILLIGRAM, QD (100 MG, 4X PER DAY)
  17. METAMIZOLE [Suspect]
     Active Substance: METAMIZOLE
     Indication: ANALGESIC THERAPY
  18. METAMIZOLE [Suspect]
     Active Substance: METAMIZOLE
     Indication: ARTHRALGIA
  19. MORPHINE [Suspect]
     Active Substance: MORPHINE
     Indication: MASTOCYTOSIS
  20. KETOPROFEN. [Suspect]
     Active Substance: KETOPROFEN
     Indication: PAIN
     Dosage: UNK
  21. GABAPENTIN. [Suspect]
     Active Substance: GABAPENTIN
     Indication: ARTHRALGIA
     Dosage: 900 MILLIGRAM DAILY
     Route: 065
  22. FENTANYL. [Suspect]
     Active Substance: FENTANYL
     Indication: PAIN
     Dosage: TRANSMUCOSAL FENTANYL IN THE FORM OF BUCCAL TABLETS AT A DOSE OF 200 ?G, AS NEEDED
  23. FENTANYL. [Suspect]
     Active Substance: FENTANYL
     Dosage: UNK
     Route: 065
  24. GABAPENTIN. [Suspect]
     Active Substance: GABAPENTIN
     Dosage: 300 MILLIGRAM, Q3D
     Route: 065
  25. PARACETAMOL [Suspect]
     Active Substance: ACETAMINOPHEN
     Indication: ARTHRALGIA
  26. OXYCODONE [Suspect]
     Active Substance: OXYCODONE
     Indication: PAIN
     Dosage: 320 MILLIGRAM, QD (80 MG, 4X PER DAY)
     Route: 048
  27. METAMIZOLE [Suspect]
     Active Substance: METAMIZOLE
     Indication: PAIN
     Dosage: UNK
     Route: 065
  28. METAMIZOLE [Suspect]
     Active Substance: METAMIZOLE
     Indication: BONE PAIN
  29. MORPHINE [Suspect]
     Active Substance: MORPHINE
     Indication: ANALGESIC THERAPY
  30. KETOPROFEN. [Suspect]
     Active Substance: KETOPROFEN
     Indication: ANALGESIC THERAPY
  31. OXYCODONE [Suspect]
     Active Substance: OXYCODONE
     Indication: PRODUCT USED FOR UNKNOWN INDICATION
     Dosage: UNK, BID
     Route: 065
  32. CLADRIBINE. [Concomitant]
     Active Substance: CLADRIBINE
     Indication: SYSTEMIC MASTOCYTOSIS
     Dosage: UNK
     Route: 065
  33. FENTANYL. [Suspect]
     Active Substance: FENTANYL
     Dosage: 200 MG IN EXACERBATIONS OF PAIN; AS REQUIRED
     Route: 002
  34. TRAMADOL. [Suspect]
     Active Substance: TRAMADOL
     Indication: MASTOCYTOSIS
  35. IBUPROFEN. [Suspect]
     Active Substance: IBUPROFEN
     Indication: ANALGESIC THERAPY
     Dosage: UNK
  36. PARACETAMOL [Suspect]
     Active Substance: ACETAMINOPHEN
     Indication: MASTOCYTOSIS
  37. MORPHINE [Suspect]
     Active Substance: MORPHINE
     Indication: PAIN
     Dosage: UNK
     Route: 065
  38. MORPHINE [Suspect]
     Active Substance: MORPHINE
     Indication: ARTHRALGIA
  39. TRAMADOL. [Suspect]
     Active Substance: TRAMADOL
     Indication: ARTHRALGIA
  40. TRAMADOL. [Suspect]
     Active Substance: TRAMADOL
     Indication: BONE PAIN
  41. IBUPROFEN. [Suspect]
     Active Substance: IBUPROFEN
     Indication: BONE PAIN
  42. PARACETAMOL [Suspect]
     Active Substance: ACETAMINOPHEN
     Indication: BONE PAIN
  43. OXYCODONE [Suspect]
     Active Substance: OXYCODONE
     Dosage: 240 MILLIGRAM DAILY; CONTROLLED?RELEASE TABLETS
     Route: 065
  44. KETOPROFEN. [Suspect]
     Active Substance: KETOPROFEN
     Indication: SYSTEMIC MASTOCYTOSIS
  45. FENTANYL. [Suspect]
     Active Substance: FENTANYL
     Indication: ARTHRALGIA
     Dosage: UNK UNK, PRN (BUCCAL TABLETS, AS NEEDED )
  46. GABAPENTIN. [Suspect]
     Active Substance: GABAPENTIN
     Indication: PAIN
     Dosage: 1200 MILLIGRAM, QD (300 MG, 4X PER DAY)
     Route: 065
  47. PARACETAMOL [Suspect]
     Active Substance: ACETAMINOPHEN
     Indication: PAIN
     Dosage: UNK
     Route: 065
  48. KETOPROFEN. [Suspect]
     Active Substance: KETOPROFEN
     Indication: ARTHRALGIA
  49. KETOPROFEN. [Suspect]
     Active Substance: KETOPROFEN
     Indication: BONE PAIN

REACTIONS (12)
  - Drug dependence [Recovered/Resolved]
  - Drug intolerance [Unknown]
  - Teething [Not Recovered/Not Resolved]
  - Rhinitis allergic [Recovered/Resolved]
  - Anaphylactic reaction [Not Recovered/Not Resolved]
  - Constipation [Unknown]
  - Therapeutic product effect incomplete [Unknown]
  - Hypersensitivity [Recovered/Resolved]
  - Anaphylactic shock [Recovered/Resolved]
  - Gingival pain [Not Recovered/Not Resolved]
  - Toothache [Not Recovered/Not Resolved]
  - Therapeutic response decreased [Unknown]
